FAERS Safety Report 13591728 (Version 2)
Quarter: 2017Q2

REPORT INFORMATION
  Report Type: Report from Study
  Country: CA (occurrence: CA)
  Receive Date: 20170530
  Receipt Date: 20170605
  Transmission Date: 20170830
  Serious: Yes (Other)
  Sender: FDA-Public Use
  Company Number: CA-PFIZER INC-2017229534

PATIENT
  Age: 37 Year
  Sex: Male

DRUGS (9)
  1. PANTOLOC [Suspect]
     Active Substance: PANTOPRAZOLE SODIUM
     Dosage: 40 MG, UNK
     Route: 048
     Dates: start: 2012
  2. ENTYVIO [Suspect]
     Active Substance: VEDOLIZUMAB
     Dosage: 300 MG, CYCLIC (ONCE EVERY FOUR WEEKS)
     Route: 042
     Dates: start: 20170527
  3. ATIVAN [Concomitant]
     Active Substance: LORAZEPAM
     Dosage: UNK
  4. ADVAGRAF [Concomitant]
     Active Substance: TACROLIMUS
     Dosage: UNK
  5. ASACOL [Concomitant]
     Active Substance: MESALAMINE
     Dosage: UNK
  6. ENTYVIO [Suspect]
     Active Substance: VEDOLIZUMAB
     Indication: COLITIS ULCERATIVE
     Dosage: 300 MG, UNK
     Route: 042
     Dates: start: 20160414
  7. TYLENOL WITH CODEINE [Concomitant]
     Active Substance: ACETAMINOPHEN\CODEINE PHOSPHATE
     Dosage: UNK
  8. ZOPICLONE [Concomitant]
     Active Substance: ZOPICLONE
     Dosage: UNK
  9. SYNTHROID [Concomitant]
     Active Substance: LEVOTHYROXINE SODIUM
     Dosage: UNK

REACTIONS (1)
  - Colitis ulcerative [Not Recovered/Not Resolved]

NARRATIVE: CASE EVENT DATE: 2017
